FAERS Safety Report 19991280 (Version 1)
Quarter: 2021Q4

REPORT INFORMATION
  Report Type: Spontaneous
  Country: US (occurrence: US)
  Receive Date: 20211022
  Receipt Date: 20211022
  Transmission Date: 20220304
  Serious: Yes (Hospitalization)
  Sender: FDA-Public Use
  Company Number: None

PATIENT
  Sex: Female

DRUGS (19)
  1. TOBRAMYCIN [Suspect]
     Active Substance: TOBRAMYCIN
     Dosage: ?          OTHER DOSE:300MG/5ML;
     Route: 055
     Dates: start: 20200428
  2. AMBIEN TAB [Concomitant]
  3. AZITHROMYCIN ANHYDROUS [Concomitant]
     Active Substance: AZITHROMYCIN ANHYDROUS
  4. CREON CAP [Concomitant]
  5. FENTANYL DIS [Concomitant]
  6. FLONASE ALGY SPR [Concomitant]
  7. GABAPENTIN [Concomitant]
     Active Substance: GABAPENTIN
  8. HYOSCYAMINE TAB [Concomitant]
  9. LEVOTHYROXIN TAB [Concomitant]
  10. MULTIVITAMIN TAB ADULTS [Concomitant]
  11. NEXIUM CAP [Concomitant]
  12. OXYCODONE TAB [Concomitant]
  13. PROAIR HFA [Concomitant]
     Active Substance: ALBUTEROL SULFATE
  14. REGLAN TAB [Concomitant]
  15. SINGULAIR [Concomitant]
     Active Substance: MONTELUKAST SODIUM
  16. SODIUM CHLORIDE [Concomitant]
     Active Substance: SODIUM CHLORIDE
  17. XANAX TAB [Concomitant]
  18. XOPENEX NEB [Concomitant]
  19. ZOFRAN TAB [Concomitant]

REACTIONS (1)
  - Infective pulmonary exacerbation of cystic fibrosis [None]
